FAERS Safety Report 17036921 (Version 11)
Quarter: 2020Q2

REPORT INFORMATION
  Report Type: Spontaneous
  Country: IL (occurrence: IL)
  Receive Date: 20191115
  Receipt Date: 20200428
  Transmission Date: 20200713
  Serious: Yes (Hospitalization, Other)
  Sender: FDA-Public Use
  Company Number: IL-PFIZER INC-2018312739

PATIENT
  Age: 62 Year
  Sex: Male

DRUGS (9)
  1. ELELYSO [Suspect]
     Active Substance: TALIGLUCERASE ALFA
     Dosage: 2800 IU, TWICE A MONTH
     Route: 042
  2. ELELYSO [Suspect]
     Active Substance: TALIGLUCERASE ALFA
     Dosage: 2800 IU, TWICE A MONTH
     Route: 042
  3. ELELYSO [Suspect]
     Active Substance: TALIGLUCERASE ALFA
     Dosage: 2800 UNITS, TWICE A MONTH ALTERNATELY
     Route: 042
  4. ELELYSO [Suspect]
     Active Substance: TALIGLUCERASE ALFA
     Indication: GAUCHER^S DISEASE
     Dosage: 2800 IU, TWICE A MONTH
     Route: 042
     Dates: start: 2013
  5. ELELYSO [Suspect]
     Active Substance: TALIGLUCERASE ALFA
     Dosage: 2800 IU, TWICE A MONTH
     Route: 042
  6. ELELYSO [Suspect]
     Active Substance: TALIGLUCERASE ALFA
     Dosage: 2800 UNITS, TWICE A MONTH ALTERNATELY
     Route: 042
  7. ELELYSO [Suspect]
     Active Substance: TALIGLUCERASE ALFA
     Dosage: 2800 IU, TWICE A MONTH INTERMITTENTLY
     Route: 042
     Dates: start: 2013
  8. ELELYSO [Suspect]
     Active Substance: TALIGLUCERASE ALFA
     Dosage: 2800 UNITS, TWICE A MONTH ALTERNATELY
  9. CIPRALEX MELTZ [Concomitant]
     Active Substance: ESCITALOPRAM OXALATE
     Dosage: UNK

REACTIONS (14)
  - Hypertension [Unknown]
  - Inappropriate schedule of product administration [Unknown]
  - Choking sensation [Recovering/Resolving]
  - Atrial fibrillation [Recovered/Resolved]
  - Oedema peripheral [Unknown]
  - Visual impairment [Unknown]
  - Foreign body in eye [Unknown]
  - Chest pain [Unknown]
  - Vitreous detachment [Unknown]
  - Panic attack [Recovering/Resolving]
  - Chest discomfort [Not Recovered/Not Resolved]
  - Dyspnoea [Recovering/Resolving]
  - Weight increased [Unknown]
  - Somnolence [Unknown]

NARRATIVE: CASE EVENT DATE: 20180802
